FAERS Safety Report 26144693 (Version 1)
Quarter: 2025Q4

REPORT INFORMATION
  Report Type: Spontaneous
  Country: US (occurrence: None)
  Receive Date: 20251210
  Receipt Date: 20251210
  Transmission Date: 20260117
  Serious: No
  Sender: FDA-CTU
  Company Number: None

PATIENT
  Age: 66 Year
  Sex: Female
  Weight: 52.6 kg

DRUGS (1)
  1. TOPAMAX [Suspect]
     Active Substance: TOPIRAMATE
     Indication: Migraine
     Dosage: FREQUENCY : DAILY;?ONE TABLET 4 TIMES DAILY
     Route: 048
     Dates: start: 20231026, end: 20250801

REACTIONS (4)
  - Metabolic acidosis [None]
  - Dizziness [None]
  - Asthenia [None]
  - Oedema [None]

NARRATIVE: CASE EVENT DATE: 20250801
